FAERS Safety Report 24896455 (Version 1)
Quarter: 2025Q1

REPORT INFORMATION
  Report Type: Spontaneous
  Country: US (occurrence: US)
  Receive Date: 20250128
  Receipt Date: 20250128
  Transmission Date: 20250409
  Serious: No
  Sender: SANOFI AVENTIS
  Company Number: US-SA-2025SA023652

PATIENT
  Age: 60 Year
  Sex: Female

DRUGS (2)
  1. KEVZARA [Suspect]
     Active Substance: SARILUMAB
     Indication: Polymyalgia rheumatica
     Dosage: 150 MG, QOW
     Route: 058
  2. PREDNISONE [Suspect]
     Active Substance: PREDNISONE

REACTIONS (4)
  - Pain in extremity [Unknown]
  - Weight increased [Unknown]
  - Injection site erythema [Recovered/Resolved]
  - Blood cholesterol increased [Unknown]
